FAERS Safety Report 13787803 (Version 1)
Quarter: 2017Q3

REPORT INFORMATION
  Report Type: Spontaneous
  Country: US (occurrence: US)
  Receive Date: 20170725
  Receipt Date: 20170725
  Transmission Date: 20171127
  Serious: No
  Sender: FDA-Public Use
  Company Number: US-JNJFOC-20170628383

PATIENT

DRUGS (1)
  1. VISINE [Suspect]
     Active Substance: TETRAHYDROZOLINE HYDROCHLORIDE
     Indication: LIP BLISTER
     Route: 061

REACTIONS (2)
  - Incorrect route of drug administration [Unknown]
  - Product use in unapproved indication [Unknown]
